FAERS Safety Report 8303803-6 (Version None)
Quarter: 2012Q2

REPORT INFORMATION
  Report Type: 
  Country: None (occurrence: None)
  Receive Date: 20120423
  Receipt Date: 20120410
  Transmission Date: 20120825
  Serious: Yes (Other)
  Sender: FDA-Public Use
  Company Number: PHHY2011KR110120

PATIENT
  Sex: Female
  Weight: 77 kg

DRUGS (1)
  1. EXJADE [Suspect]
     Indication: IRON OVERLOAD
     Route: 048
     Dates: start: 20100614

REACTIONS (3)
  - RED BLOOD CELL COUNT DECREASED [None]
  - VISUAL ACUITY REDUCED [None]
  - NERVOUS SYSTEM DISORDER [None]
